FAERS Safety Report 6044499-6 (Version None)
Quarter: 2009Q1

REPORT INFORMATION
  Report Type: 
  Country: None (occurrence: None)
  Receive Date: 20090120
  Receipt Date: 20081222
  Transmission Date: 20090719
  Serious: Yes (Other)
  Sender: FDA-Public Use
  Company Number: US-PFIZER INC-2008158734

PATIENT

DRUGS (1)
  1. LIPITOR [Suspect]

REACTIONS (2)
  - MUSCLE SPASMS [None]
  - SURGERY [None]
